FAERS Safety Report 7705518-1 (Version None)
Quarter: 2011Q3

REPORT INFORMATION
  Report Type: 
  Country: None (occurrence: None)
  Receive Date: 20110824
  Receipt Date: 20110817
  Transmission Date: 20111222
  Serious: Yes (Hospitalization)
  Sender: FDA-Public Use
  Company Number: AR-AMGEN-ARGSP2011040785

PATIENT
  Age: 52 Year
  Sex: Female
  Weight: 53 kg

DRUGS (5)
  1. ENBREL [Suspect]
     Dosage: UNK
     Dates: start: 20110728
  2. ENBREL [Suspect]
     Indication: RHEUMATOID ARTHRITIS
     Dosage: 50 MG, WEEKLY
     Route: 058
     Dates: start: 20100805, end: 20110609
  3. PREGABALIN [Concomitant]
     Dosage: UNK
     Route: 048
  4. VITAMIN D [Concomitant]
     Dosage: UNK
     Route: 048
  5. ALENDRONATE SODIUM [Concomitant]
     Dosage: UNK
     Route: 048

REACTIONS (2)
  - DEHYDRATION [None]
  - LABYRINTHITIS [None]
